FAERS Safety Report 21993884 (Version 2)
Quarter: 2023Q1

REPORT INFORMATION
  Report Type: Spontaneous
  Country: US (occurrence: US)
  Receive Date: 20230215
  Receipt Date: 20230306
  Transmission Date: 20230417
  Serious: Yes (Other)
  Sender: FDA-Public Use
  Company Number: US-drreddys-SPO/USA/23/0160942

PATIENT
  Age: 61 Year
  Sex: Female

DRUGS (3)
  1. TACROLIMUS [Suspect]
     Active Substance: TACROLIMUS
     Indication: Immunosuppressant drug therapy
  2. TACROLIMUS [Suspect]
     Active Substance: TACROLIMUS
     Indication: Cholangitis sclerosing
  3. MESALAMINE [Suspect]
     Active Substance: MESALAMINE
     Indication: Cholangitis sclerosing

REACTIONS (2)
  - Epstein-Barr virus associated lymphoproliferative disorder [Unknown]
  - Post transplant lymphoproliferative disorder [Unknown]
